FAERS Safety Report 7796190-3 (Version None)
Quarter: 2011Q4

REPORT INFORMATION
  Report Type: 
  Country: None (occurrence: None)
  Receive Date: 20111004
  Receipt Date: 20110919
  Transmission Date: 20120403
  Serious: Yes (Death)
  Sender: FDA-Public Use
  Company Number: HK-WATSON-2011-15735

PATIENT
  Age: 29 Year
  Sex: Female

DRUGS (1)
  1. HYDROXYCHLOROQUINE SULFATE [Suspect]
     Indication: SYSTEMIC LUPUS ERYTHEMATOSUS
     Dosage: 200 MG X 10 TABLETS (SINGLE DOSE)
     Route: 065
     Dates: start: 20100601

REACTIONS (3)
  - OVERDOSE [None]
  - COMPLETED SUICIDE [None]
  - CARDIAC ARREST [None]
